FAERS Safety Report 5013447-X (Version None)
Quarter: 2006Q2

REPORT INFORMATION
  Report Type: 
  Country: None (occurrence: None)
  Receive Date: 20060525
  Receipt Date: 20060525
  Transmission Date: 20061013
  Serious: Yes (Hospitalization)
  Sender: FDA-Public Use
  Company Number: None

PATIENT
  Age: 13 Year
  Sex: Female
  Weight: 63.5036 kg

DRUGS (3)
  1. AMBIEN [Suspect]
     Indication: INSOMNIA
     Dosage: 10MG BEDTIME PO
     Route: 048
     Dates: start: 20060304, end: 20060308
  2. PAXIL [Suspect]
     Indication: DEPRESSION
     Dosage: DAILY BEDTIME PO
     Route: 048
     Dates: start: 20060213, end: 20060220
  3. PAXIL [Suspect]
     Indication: INSOMNIA
     Dosage: DAILY BEDTIME PO
     Route: 048
     Dates: start: 20060213, end: 20060220

REACTIONS (19)
  - ABASIA [None]
  - ABDOMINAL PAIN UPPER [None]
  - ABNORMAL BEHAVIOUR [None]
  - ADVERSE EVENT [None]
  - AGGRESSION [None]
  - ANGER [None]
  - CONFUSIONAL STATE [None]
  - CRYING [None]
  - DEHYDRATION [None]
  - DIPLOPIA [None]
  - DYSARTHRIA [None]
  - ENURESIS [None]
  - INAPPROPRIATE AFFECT [None]
  - INCOHERENT [None]
  - INFLUENZA [None]
  - SCREAMING [None]
  - SELF INJURIOUS BEHAVIOUR [None]
  - URINARY INCONTINENCE [None]
  - VOMITING [None]
